FAERS Safety Report 8144771 (Version 4)
Quarter: 2013Q3

REPORT INFORMATION
  Report Type: Report from Study
  Country: US (occurrence: US)
  Receive Date: 20110920
  Receipt Date: 20130719
  Transmission Date: 20140515
  Serious: Yes (Other)
  Sender: FDA-Public Use
  Company Number: US-BRISTOL-MYERS SQUIBB COMPANY-16068116

PATIENT
  Age: 78 Year
  Sex: Male

DRUGS (10)
  1. AMARYL [Suspect]
     Indication: TYPE 2 DIABETES MELLITUS
  2. PLACEBO [Suspect]
     Indication: TYPE 2 DIABETES MELLITUS
     Dates: start: 20100616
  3. ASPIRIN [Concomitant]
  4. NIACIN [Concomitant]
  5. NITRATES [Concomitant]
  6. VITAMIN D [Concomitant]
     Route: 048
  7. MULTIVITAMIN [Concomitant]
     Route: 048
  8. MIRALAX [Concomitant]
     Route: 048
  9. CALCIUM ASCORBATE [Concomitant]
     Route: 048
  10. OMEPRAZOLE [Concomitant]
     Indication: DYSPHAGIA
     Route: 048

REACTIONS (1)
  - Oesophageal candidiasis [Recovered/Resolved]
